FAERS Safety Report 6584394-7 (Version None)
Quarter: 2010Q1

REPORT INFORMATION
  Report Type: 
  Country: None (occurrence: None)
  Receive Date: 20100216
  Receipt Date: 20100212
  Transmission Date: 20100710
  Serious: No
  Sender: FDA-Public Use
  Company Number: US-ABBOTT-10P-163-0624101-00

PATIENT
  Sex: Male
  Weight: 83.082 kg

DRUGS (6)
  1. SIMCOR [Suspect]
     Indication: BLOOD CHOLESTEROL INCREASED
     Route: 048
     Dates: start: 20090701
  2. CELEBREX [Concomitant]
     Indication: DRUG USE FOR UNKNOWN INDICATION
  3. OPANNA [Concomitant]
     Indication: DRUG USE FOR UNKNOWN INDICATION
  4. COMBUNOX [Concomitant]
     Indication: SPONDYLITIS
  5. AMLODIPINE [Concomitant]
     Indication: BLOOD PRESSURE
  6. ASPIRIN [Concomitant]
     Indication: DRUG USE FOR UNKNOWN INDICATION
     Dosage: AS PRESCRIBED IN THE AM

REACTIONS (1)
  - FLUSHING [None]
